FAERS Safety Report 6157813-8 (Version None)
Quarter: 2009Q2

REPORT INFORMATION
  Report Type: 
  Country: None (occurrence: None)
  Receive Date: 20090414
  Receipt Date: 20090406
  Transmission Date: 20091009
  Serious: Yes (Other)
  Sender: FDA-Public Use
  Company Number: 2009SP007252

PATIENT
  Sex: Female

DRUGS (3)
  1. LORATADINE [Suspect]
  2. HYDROCORTISONE [Suspect]
  3. RITUXAN [Suspect]
     Dosage: 750 MG;IV
     Route: 042
     Dates: start: 20070828, end: 20081218

REACTIONS (1)
  - POLYNEUROPATHY [None]
